FAERS Safety Report 16589361 (Version 2)
Quarter: 2019Q4

REPORT INFORMATION
  Report Type: Spontaneous
  Country: ES (occurrence: ES)
  Receive Date: 20190718
  Receipt Date: 20191015
  Transmission Date: 20200122
  Serious: No
  Sender: FDA-Public Use
  Company Number: ES-ASTRAZENECA-2019SE99802

PATIENT
  Sex: Female
  Weight: 108 kg

DRUGS (6)
  1. FASENRA [Suspect]
     Active Substance: BENRALIZUMAB
     Route: 058
     Dates: start: 20190610
  2. SPIRIVA RESPIMAT [Concomitant]
     Active Substance: TIOTROPIUM BROMIDE
     Dosage: 2/24 HRS
  3. FASENRA [Suspect]
     Active Substance: BENRALIZUMAB
     Route: 058
  4. SALBUTAMOL [Concomitant]
     Active Substance: ALBUTEROL
  5. SEBIPROX [Concomitant]
     Active Substance: CICLOPIROX OLAMINE
     Dosage: 15 MG
  6. RILAST [Concomitant]
     Active Substance: BUDESONIDE\FORMOTEROL
     Dosage: 2/12 HRS

REACTIONS (1)
  - Eosinophilia [Unknown]
